FAERS Safety Report 9086831 (Version 1)
Quarter: 2013Q1

REPORT INFORMATION
  Report Type: Report from Study
  Country: US (occurrence: US)
  Receive Date: 20130130
  Receipt Date: 20130130
  Transmission Date: 20140127
  Serious: No
  Sender: FDA-Public Use
  Company Number: US-ABBOTT-12P-163-0978995-00

PATIENT
  Sex: Female

DRUGS (1)
  1. HUMIRA [Suspect]
     Indication: RHEUMATOID ARTHRITIS
     Dosage: PEN
     Dates: start: 20120723, end: 20120806

REACTIONS (8)
  - Wound [Unknown]
  - Injection site pain [Unknown]
  - Abdominal pain upper [Unknown]
  - Headache [Unknown]
  - Alopecia [Unknown]
  - Pruritus [Unknown]
  - Urticaria [Unknown]
  - Wound [Unknown]
